FAERS Safety Report 13050825 (Version 1)
Quarter: 2016Q4

REPORT INFORMATION
  Report Type: Spontaneous
  Country: US (occurrence: US)
  Receive Date: 20161221
  Receipt Date: 20161221
  Transmission Date: 20170207
  Serious: No
  Sender: FDA-Public Use
  Company Number: US-ENDO PHARMACEUTICALS INC.-2016-001140

PATIENT
  Sex: Female
  Weight: 104.42 kg

DRUGS (4)
  1. OXYMORPHONE HYDROCHLORIDE. [Suspect]
     Active Substance: OXYMORPHONE HYDROCHLORIDE
     Indication: BREAKTHROUGH PAIN
     Route: 048
  2. OXYMORPHONE ER [Suspect]
     Active Substance: OXYMORPHONE
     Route: 048
     Dates: start: 2014, end: 201511
  3. OPANA ER [Suspect]
     Active Substance: OXYMORPHONE HYDROCHLORIDE
     Indication: PAIN
     Route: 048
     Dates: start: 20160118
  4. OXYMORPHONE ER [Suspect]
     Active Substance: OXYMORPHONE
     Indication: PAIN
     Route: 048
     Dates: start: 201511

REACTIONS (1)
  - Drug effect decreased [Unknown]

NARRATIVE: CASE EVENT DATE: 2016
